FAERS Safety Report 9058575 (Version 3)
Quarter: 2013Q1

REPORT INFORMATION
  Report Type: Spontaneous
  Country: JP (occurrence: JP)
  Receive Date: 20130211
  Receipt Date: 20130306
  Transmission Date: 20140127
  Serious: Yes (Hospitalization)
  Sender: FDA-Public Use
  Company Number: JP-JNJFOC-20130115707

PATIENT
  Age: 76 Year
  Sex: Female

DRUGS (3)
  1. TRAMCET [Suspect]
     Indication: PAIN
     Dosage: 2 PER 1 DAY
     Route: 048
     Dates: start: 20120725, end: 20130123
  2. LIVALO [Suspect]
     Indication: PRODUCT USED FOR UNKNOWN INDICATION
     Route: 048
     Dates: end: 20130123
  3. DEPAS [Concomitant]
     Dosage: 1 PER 1 DAY
     Route: 048

REACTIONS (1)
  - Hepatic function abnormal [Recovering/Resolving]
